FAERS Safety Report 9181375 (Version 1)
Quarter: 2013Q1

REPORT INFORMATION
  Report Type: Spontaneous
  Country: FI (occurrence: FI)
  Receive Date: 20130322
  Receipt Date: 20130322
  Transmission Date: 20140127
  Serious: Yes (Other)
  Sender: FDA-Public Use
  Company Number: FI-JNJFOC-20130309353

PATIENT
  Age: 52 Year
  Sex: Male
  Weight: 80 kg

DRUGS (6)
  1. REMICADE [Suspect]
     Indication: COLITIS ULCERATIVE
     Route: 042
     Dates: start: 20121005
  2. REMICADE [Suspect]
     Indication: COLITIS ULCERATIVE
     Route: 042
     Dates: start: 20130308, end: 20130308
  3. REMICADE [Suspect]
     Indication: COLITIS ULCERATIVE
     Route: 042
     Dates: start: 201301
  4. REMICADE [Suspect]
     Indication: COLITIS ULCERATIVE
     Route: 042
     Dates: start: 201212
  5. PREDNISOLON [Concomitant]
     Indication: COLITIS ULCERATIVE
     Dosage: DAILY IN THE MORNING
     Route: 048
  6. HISTEC [Concomitant]
     Indication: PREMEDICATION
     Route: 065
     Dates: start: 20130308

REACTIONS (5)
  - Erythema [Recovered/Resolved]
  - Scleral discolouration [Recovered/Resolved]
  - Infusion related reaction [Recovered/Resolved]
  - Rash [Recovered/Resolved]
  - Oxygen saturation decreased [Recovered/Resolved]
